FAERS Safety Report 23764274 (Version 1)
Quarter: 2024Q2

REPORT INFORMATION
  Report Type: Spontaneous
  Country: GB (occurrence: GB)
  Receive Date: 20240420
  Receipt Date: 20240420
  Transmission Date: 20240716
  Serious: Yes (Disabling)
  Sender: FDA-Public Use
  Company Number: GB-MHRA-MED-202404110615227040-PWZYT

PATIENT
  Sex: Female

DRUGS (1)
  1. METRONIDAZOLE [Suspect]
     Active Substance: METRONIDAZOLE
     Indication: Product used for unknown indication
     Dosage: UNK
     Route: 065

REACTIONS (1)
  - Visual impairment [Not Recovered/Not Resolved]

NARRATIVE: CASE EVENT DATE: 20240115
